FAERS Safety Report 7765265-7 (Version None)
Quarter: 2011Q3

REPORT INFORMATION
  Report Type: 
  Country: None (occurrence: None)
  Receive Date: 20110921
  Receipt Date: 20110915
  Transmission Date: 20111222
  Serious: Yes (Hospitalization)
  Sender: FDA-Public Use
  Company Number: GB-GLAXOSMITHKLINE-B0748342A

PATIENT
  Sex: Male

DRUGS (2)
  1. VALPROATE SODIUM [Concomitant]
     Dosage: 800MG TWICE PER DAY
  2. LAMOTRIGINE [Suspect]
     Indication: EPILEPSY
     Route: 048

REACTIONS (2)
  - TREATMENT NONCOMPLIANCE [None]
  - RASH [None]
